FAERS Safety Report 8525397-2 (Version None)
Quarter: 2012Q3

REPORT INFORMATION
  Report Type: 
  Country: None (occurrence: None)
  Receive Date: 20120720
  Receipt Date: 20120706
  Transmission Date: 20120928
  Serious: Yes (Other)
  Sender: FDA-Public Use
  Company Number: JP-ASTELLAS-2012US006283

PATIENT
  Age: 82 Year
  Sex: Male

DRUGS (5)
  1. TARCEVA [Suspect]
     Dosage: 25 MG, TID
     Route: 048
     Dates: start: 20120101, end: 20120601
  2. TARCEVA [Suspect]
     Dosage: 150 MG, UID/QD
     Route: 048
     Dates: start: 20120301, end: 20120101
  3. TARCEVA [Suspect]
     Indication: LUNG NEOPLASM MALIGNANT
     Dosage: 25 MG, BID
     Route: 048
     Dates: start: 20120201, end: 20120301
  4. TARCEVA [Suspect]
     Dosage: 25 MG, QID
     Route: 048
     Dates: start: 20120629
  5. TARCEVA [Suspect]
     Dosage: 25 MG, TID
     Route: 048
     Dates: start: 20120101, end: 20120101

REACTIONS (8)
  - ONYCHOCLASIS [None]
  - PAIN OF SKIN [None]
  - RASH GENERALISED [None]
  - OVERDOSE [None]
  - SKIN SWELLING [None]
  - SKIN WARM [None]
  - INCORRECT DOSE ADMINISTERED [None]
  - DIARRHOEA [None]
